FAERS Safety Report 22659935 (Version 1)
Quarter: 2023Q2

REPORT INFORMATION
  Report Type: Spontaneous
  Country: US (occurrence: None)
  Receive Date: 20230630
  Receipt Date: 20230630
  Transmission Date: 20230721
  Serious: Yes (Other)
  Sender: FDA-Public Use
  Company Number: None

PATIENT
  Age: 26 Year
  Sex: Female

DRUGS (1)
  1. TOPIRAMATE [Suspect]
     Active Substance: TOPIRAMATE
     Indication: Migraine
     Route: 048
     Dates: start: 20120611, end: 20120621

REACTIONS (4)
  - Migraine [None]
  - Dizziness [None]
  - Disorientation [None]
  - Syncope [None]

NARRATIVE: CASE EVENT DATE: 20120611
